FAERS Safety Report 8132221-9 (Version None)
Quarter: 2012Q1

REPORT INFORMATION
  Report Type: 
  Country: None (occurrence: None)
  Receive Date: 20120208
  Receipt Date: 20120124
  Transmission Date: 20120608
  Serious: Yes (Other)
  Sender: FDA-Public Use
  Company Number: TPA2012A00614

PATIENT
  Age: 57 Year
  Sex: Male

DRUGS (4)
  1. FEBURIC (FEBUXOSTAT) [Suspect]
     Indication: HYPERURICAEMIA
     Dosage: 10 MG (10 MG,1 IN 1 D) PER ORAL
     Route: 048
     Dates: start: 20111028, end: 20111214
  2. UNISIA (AMLODIPINE BESILATE) [Concomitant]
  3. UBIRON (URSODEOXYCHOLIC ACID) [Concomitant]
  4. MUCOSTA (REBAMIPIDE) [Concomitant]

REACTIONS (5)
  - LIVER DISORDER [None]
  - ASPARTATE AMINOTRANSFERASE INCREASED [None]
  - ALANINE AMINOTRANSFERASE INCREASED [None]
  - BLOOD ALKALINE PHOSPHATASE INCREASED [None]
  - RASH [None]
